FAERS Safety Report 7784167-3 (Version None)
Quarter: 2011Q3

REPORT INFORMATION
  Report Type: 
  Country: None (occurrence: None)
  Receive Date: 20110928
  Receipt Date: 20110915
  Transmission Date: 20111222
  Serious: Yes (Hospitalization, Other)
  Sender: FDA-Public Use
  Company Number: US-ELI_LILLY_AND_COMPANY-US201005007200

PATIENT
  Sex: Male

DRUGS (9)
  1. INSULIN [Concomitant]
  2. FORTEO [Suspect]
     Indication: OSTEOPOROSIS
     Dosage: 20 UG, DAILY (1/D)
     Dates: start: 20100510
  3. PROTONIX [Concomitant]
  4. CLONIDINE [Concomitant]
  5. LISINOPRIL [Concomitant]
  6. REGLAN [Concomitant]
  7. FORTEO [Suspect]
     Dosage: 20 UG, DAILY (1/D)
  8. FORTEO [Suspect]
     Dosage: 20 UG, DAILY (1/D)
  9. ANTIBIOTICS [Concomitant]
     Indication: CHRONIC OBSTRUCTIVE PULMONARY DISEASE

REACTIONS (8)
  - PAIN IN EXTREMITY [None]
  - DIZZINESS [None]
  - CEREBROVASCULAR ACCIDENT [None]
  - FOOT FRACTURE [None]
  - BALANCE DISORDER [None]
  - NERVOUS SYSTEM DISORDER [None]
  - MUSCLE SPASMS [None]
  - ACCIDENT [None]
